FAERS Safety Report 5513353-8 (Version None)
Quarter: 2007Q4

REPORT INFORMATION
  Report Type: 
  Country: None (occurrence: None)
  Receive Date: 20071112
  Receipt Date: 20071102
  Transmission Date: 20080405
  Serious: Yes (Hospitalization)
  Sender: FDA-Public Use
  Company Number: FR-ABBOTT-07P-056-0372776-00

PATIENT
  Sex: Male

DRUGS (12)
  1. DEPAKOTE [Suspect]
     Indication: AFFECTIVE DISORDER
     Route: 048
     Dates: start: 20060101, end: 20070510
  2. DEPAKOTE [Suspect]
     Route: 048
     Dates: start: 20060101, end: 20060101
  3. ALIMEMAZINE TARTRATE [Concomitant]
     Indication: DRUG USE FOR UNKNOWN INDICATION
     Route: 048
  4. MIANSERIN HYDROCHLORIDE [Concomitant]
     Indication: DEPRESSION
     Route: 048
  5. LACTULOSE [Concomitant]
     Indication: CONSTIPATION
     Route: 048
  6. ZOPICLONE [Concomitant]
     Indication: INSOMNIA
     Route: 048
  7. MILNACIPRAN [Concomitant]
     Indication: DRUG USE FOR UNKNOWN INDICATION
     Route: 048
  8. TROPATEPINE HYDROCHLORIDE [Concomitant]
     Indication: DRUG USE FOR UNKNOWN INDICATION
     Route: 048
  9. FENOFIBRATE [Concomitant]
     Indication: DYSLIPIDAEMIA
     Route: 048
  10. RISPERIDONE [Concomitant]
     Indication: DRUG USE FOR UNKNOWN INDICATION
     Route: 048
  11. LORAZEPAM [Concomitant]
     Indication: ANXIETY
     Route: 048
  12. CYAMEMAZINE [Concomitant]
     Indication: ANXIETY

REACTIONS (2)
  - PANCREATIC DISORDER [None]
  - PANCREATITIS ACUTE [None]
